FAERS Safety Report 25819232 (Version 1)
Quarter: 2025Q3

REPORT INFORMATION
  Report Type: Spontaneous
  Country: US (occurrence: US)
  Receive Date: 20250918
  Receipt Date: 20250918
  Transmission Date: 20251020
  Serious: No
  Sender: SANOFI AVENTIS
  Company Number: US-SA-2025SA277252

PATIENT
  Age: 79 Year
  Sex: Female
  Weight: 60.45 kg

DRUGS (25)
  1. DUPIXENT [Suspect]
     Active Substance: DUPILUMAB
     Indication: Asthma
     Route: 058
     Dates: start: 20250904, end: 20250904
  2. DUPIXENT [Suspect]
     Active Substance: DUPILUMAB
     Dosage: 300 MG, QOW
     Route: 058
     Dates: start: 202509
  3. TYLENOL [Concomitant]
     Active Substance: ACETAMINOPHEN
  4. DIETARY SUPPLEMENT [Concomitant]
     Active Substance: DIETARY SUPPLEMENT
  5. MUCINEX [Concomitant]
     Active Substance: GUAIFENESIN
  6. TRIAMCINOLONE ACETONIDE [Concomitant]
     Active Substance: TRIAMCINOLONE ACETONIDE
  7. CLOBETASOL [Concomitant]
     Active Substance: CLOBETASOL
  8. ESTRADIOL [Concomitant]
     Active Substance: ESTRADIOL
  9. ASCORBIC ACID [Concomitant]
     Active Substance: ASCORBIC ACID
  10. SYSTANE (HYPROMELLOSE 2910 (4000 MPA.S)) [Concomitant]
     Active Substance: HYPROMELLOSE 2910 (4000 MPA.S)
  11. REFRESH PLUS [Concomitant]
     Active Substance: CARBOXYMETHYLCELLULOSE SODIUM
  12. MAGNESIUM [Concomitant]
     Active Substance: MAGNESIUM
  13. EPIPEN [Concomitant]
     Active Substance: EPINEPHRINE
  14. SALAGEN [Concomitant]
     Active Substance: PILOCARPINE HYDROCHLORIDE
  15. HYDROXYCHLOROQUINE SULFATE [Concomitant]
     Active Substance: HYDROXYCHLOROQUINE SULFATE
  16. FLUTICASONE PROPIONATE [Concomitant]
     Active Substance: FLUTICASONE PROPIONATE
  17. FAMCICLOVIR [Concomitant]
     Active Substance: FAMCICLOVIR
  18. LINZESS [Concomitant]
     Active Substance: LINACLOTIDE
  19. SYNTHROID [Concomitant]
     Active Substance: LEVOTHYROXINE SODIUM
  20. LORAZEPAM [Concomitant]
     Active Substance: LORAZEPAM
  21. SODIUM CHLORIDE [Concomitant]
     Active Substance: SODIUM CHLORIDE
  22. INCRUSE ELLIPTA [Concomitant]
     Active Substance: UMECLIDINIUM BROMIDE
  23. ALBUTEROL SULFATE [Concomitant]
     Active Substance: ALBUTEROL SULFATE
  24. SODIUM CHLORIDE [Concomitant]
     Active Substance: SODIUM CHLORIDE
  25. FORTEO [Concomitant]
     Active Substance: TERIPARATIDE

REACTIONS (8)
  - Pain [Unknown]
  - Dry skin [Unknown]
  - Visual impairment [Unknown]
  - Eczema [Unknown]
  - Influenza like illness [Unknown]
  - Skin exfoliation [Unknown]
  - Urticaria [Unknown]
  - Dry eye [Unknown]

NARRATIVE: CASE EVENT DATE: 20250901
